FAERS Safety Report 5908654-5 (Version None)
Quarter: 2008Q4

REPORT INFORMATION
  Report Type: 
  Country: None (occurrence: None)
  Receive Date: 20081001
  Receipt Date: 20080917
  Transmission Date: 20090506
  Serious: Yes (Other)
  Sender: FDA-Public Use
  Company Number: 236801K07USA

PATIENT
  Age: 46 Year
  Sex: Male

DRUGS (4)
  1. REBIF [Suspect]
     Indication: MULTIPLE SCLEROSIS
     Dosage: 22MCG, 44 MCG, 3 IN 1 WEEKS, SUBCUTANEOUS
     Route: 058
     Dates: start: 20020530
  2. ALEVE (CAPLET) [Concomitant]
  3. GINKO BILOBA (GINKGO BILOBA) [Concomitant]
  4. GINSENG (GINSENG /00480901/) [Concomitant]

REACTIONS (4)
  - BALANCE DISORDER [None]
  - EYE MOVEMENT DISORDER [None]
  - FATIGUE [None]
  - INFLUENZA LIKE ILLNESS [None]
